FAERS Safety Report 19560963 (Version 2)
Quarter: 2021Q3

REPORT INFORMATION
  Report Type: Spontaneous
  Country: US (occurrence: US)
  Receive Date: 20210716
  Receipt Date: 20210721
  Transmission Date: 20211014
  Serious: Yes (Other)
  Sender: FDA-Public Use
  Company Number: US-BEH-2021134028

PATIENT
  Age: 48 Year
  Sex: Female

DRUGS (1)
  1. HIZENTRA [Suspect]
     Active Substance: HUMAN IMMUNOGLOBULIN G
     Indication: IMMUNODEFICIENCY
     Dosage: 9 GRAM, QW
     Route: 058
     Dates: start: 201904

REACTIONS (8)
  - Diplopia [Unknown]
  - Head discomfort [Unknown]
  - Therapy interrupted [Unknown]
  - Facial pain [Unknown]
  - No adverse event [Unknown]
  - Facial paralysis [Unknown]
  - Headache [Unknown]
  - Paraesthesia [Unknown]

NARRATIVE: CASE EVENT DATE: 202010
